FAERS Safety Report 10868941 (Version 2)
Quarter: 2015Q1

REPORT INFORMATION
  Report Type: Report from Study
  Country: US (occurrence: US)
  Receive Date: 20150225
  Receipt Date: 20150304
  Transmission Date: 20150721
  Serious: No
  Sender: FDA-Public Use
  Company Number: US-GILEAD-2015-0139289

PATIENT
  Age: 67 Year
  Sex: Female

DRUGS (2)
  1. AMBRISENTAN [Suspect]
     Active Substance: AMBRISENTAN
     Indication: PRODUCT USED FOR UNKNOWN INDICATION
     Dosage: 10 MG, QD
     Route: 065
     Dates: start: 20110912
  2. ORENITRAM [Concomitant]
     Active Substance: TREPROSTINIL

REACTIONS (6)
  - Malaise [Unknown]
  - Bronchitis [Unknown]
  - Diarrhoea [Unknown]
  - Nasopharyngitis [Unknown]
  - Decreased appetite [Unknown]
  - Fatigue [Unknown]
